FAERS Safety Report 17768879 (Version 4)
Quarter: 2020Q2

REPORT INFORMATION
  Report Type: Spontaneous
  Country: GB (occurrence: GB)
  Receive Date: 20200512
  Receipt Date: 20200617
  Transmission Date: 20200714
  Serious: Yes (Other)
  Sender: FDA-Public Use
  Company Number: GB-ABBVIE-20P-167-3383406-00

PATIENT
  Sex: Male

DRUGS (2)
  1. PROSTAP SR DCS [Suspect]
     Active Substance: LEUPROLIDE ACETATE
     Route: 065
     Dates: start: 201909
  2. PROSTAP SR DCS [Suspect]
     Active Substance: LEUPROLIDE ACETATE
     Indication: NEOPLASM MALIGNANT
     Route: 065

REACTIONS (8)
  - Incontinence [Unknown]
  - Libido decreased [Unknown]
  - Breast mass [Unknown]
  - Gynaecomastia [Unknown]
  - Spontaneous penile erection [Unknown]
  - Hyperhidrosis [Unknown]
  - Amnesia [Unknown]
  - Suicidal ideation [Unknown]
